FAERS Safety Report 15567313 (Version 1)
Quarter: 2018Q4

REPORT INFORMATION
  Report Type: Spontaneous
  Country: US (occurrence: US)
  Receive Date: 20181030
  Receipt Date: 20181030
  Transmission Date: 20190205
  Serious: No
  Sender: FDA-Public Use
  Company Number: US-BAYER-2018-200681

PATIENT
  Age: 79 Year
  Sex: Female

DRUGS (2)
  1. CEFTIN [Concomitant]
     Active Substance: CEFUROXIME AXETIL
     Dosage: UNK
  2. CLARITIN [Suspect]
     Active Substance: LORATADINE
     Dosage: 1 DF, UNK
     Route: 048
     Dates: start: 20181025, end: 20181025

REACTIONS (9)
  - Nausea [Unknown]
  - Dysphagia [Unknown]
  - Off label use [Unknown]
  - Skin warm [Unknown]
  - Drug hypersensitivity [Unknown]
  - Arthritis [None]
  - Back pain [Unknown]
  - Throat tightness [Unknown]
  - Product use in unapproved indication [Unknown]

NARRATIVE: CASE EVENT DATE: 20181025
